FAERS Safety Report 21086454 (Version 3)
Quarter: 2022Q3

REPORT INFORMATION
  Report Type: Report from Study
  Country: PH (occurrence: PH)
  Receive Date: 20220715
  Receipt Date: 20220728
  Transmission Date: 20221027
  Serious: Yes (Death, Hospitalization, Other)
  Sender: FDA-Public Use
  Company Number: PH-NOVARTISPH-NVSC2022PH160204

PATIENT
  Age: 29 Year
  Sex: Male

DRUGS (5)
  1. TASIGNA [Suspect]
     Active Substance: NILOTINIB
     Indication: Chronic myeloid leukaemia
     Dosage: 150 MG (4X A DAY)
     Route: 048
     Dates: start: 202202
  2. TASIGNA [Suspect]
     Active Substance: NILOTINIB
     Dosage: 600 MG, QD
     Route: 065
  3. TASIGNA [Suspect]
     Active Substance: NILOTINIB
     Dosage: 300 MG
     Route: 065
  4. FUROSEMIDE [Concomitant]
     Active Substance: FUROSEMIDE
     Indication: Product used for unknown indication
     Dosage: 40 MG, QD
     Route: 042
  5. LEVOFLOXACIN [Concomitant]
     Active Substance: LEVOFLOXACIN
     Indication: Product used for unknown indication
     Dosage: 750 MG, QD
     Route: 042

REACTIONS (29)
  - White blood cell count increased [Fatal]
  - Red blood cell count decreased [Fatal]
  - Platelet count decreased [Fatal]
  - Chronic myeloid leukaemia [Fatal]
  - Haemorrhage intracranial [Fatal]
  - Facial asymmetry [Fatal]
  - Headache [Fatal]
  - Chest pain [Fatal]
  - Hemiplegia [Fatal]
  - Acute kidney injury [Fatal]
  - Acute respiratory failure [Fatal]
  - Pulmonary haemorrhage [Fatal]
  - Haemarthrosis [Unknown]
  - Pneumonia [Unknown]
  - Dizziness [Unknown]
  - Dysarthria [Unknown]
  - Hypoaesthesia [Unknown]
  - Vomiting [Unknown]
  - Lip dry [Unknown]
  - Abdominal distension [Unknown]
  - Cranial nerve disorder [Unknown]
  - Drug ineffective [Unknown]
  - Splenomegaly [Unknown]
  - Pyrexia [Unknown]
  - Ecchymosis [Unknown]
  - Rash [Unknown]
  - Tachycardia [Unknown]
  - Blood pressure decreased [Unknown]
  - Incorrect dose administered [Unknown]
